FAERS Safety Report 7121400-5 (Version None)
Quarter: 2010Q4

REPORT INFORMATION
  Report Type: 
  Country: None (occurrence: None)
  Receive Date: 20101124
  Receipt Date: 20101117
  Transmission Date: 20110411
  Serious: Yes (Other)
  Sender: FDA-Public Use
  Company Number: US-BAYER-201038775NA

PATIENT
  Age: 43 Year
  Sex: Female

DRUGS (4)
  1. ULTRAVIST SINGLE USE [Suspect]
     Indication: COMPUTERISED TOMOGRAM ABDOMEN
     Dosage: AS USED: 100 MG  UNIT DOSE: 100 MG
     Route: 042
     Dates: start: 20101015, end: 20101015
  2. BENADRYL [Concomitant]
     Indication: PREMEDICATION
  3. PREDNISONE [Concomitant]
     Indication: PREMEDICATION
  4. ORAL CONTRAST (NOS) [Concomitant]
     Indication: COMPUTERISED TOMOGRAM ABDOMEN
     Route: 048
     Dates: start: 20101015, end: 20101015

REACTIONS (3)
  - ERYTHEMA [None]
  - FLUSHING [None]
  - URTICARIA [None]
